FAERS Safety Report 12071393 (Version 4)
Quarter: 2016Q2

REPORT INFORMATION
  Report Type: Report from Study
  Country: CH (occurrence: CH)
  Receive Date: 20160211
  Receipt Date: 20160419
  Transmission Date: 20160815
  Serious: Yes (Hospitalization)
  Sender: FDA-Public Use
  Company Number: CH-BIOGEN-2016BI00185752

PATIENT
  Age: 54 Year
  Sex: Female
  Weight: 56 kg

DRUGS (7)
  1. MAGNESIUM DIASPORAL [Concomitant]
     Indication: OSTEOPOROSIS PROPHYLAXIS
     Dates: start: 20151215
  2. BG00012 [Suspect]
     Active Substance: DIMETHYL FUMARATE
     Route: 048
     Dates: start: 20150505
  3. ZELLER SOMMEIL FORTE [Concomitant]
     Indication: INSOMNIA
     Dates: start: 20100620
  4. L-LYSINE BURGERSTEIN [Concomitant]
     Indication: ANTIVIRAL PROPHYLAXIS
     Dates: start: 1998
  5. BG00012 [Suspect]
     Active Substance: DIMETHYL FUMARATE
     Indication: MULTIPLE SCLEROSIS
     Route: 048
     Dates: start: 20100927
  6. VI-DE 3 [Concomitant]
     Active Substance: CHOLECALCIFEROL
     Indication: VITAMIN SUPPLEMENTATION
     Dates: start: 20150731
  7. REDORMIN [Concomitant]
     Indication: INSOMNIA
     Dates: start: 20091004

REACTIONS (2)
  - Femoral neck fracture [Recovered/Resolved with Sequelae]
  - Fall [Recovered/Resolved]

NARRATIVE: CASE EVENT DATE: 20160202
